FAERS Safety Report 12219082 (Version 2)
Quarter: 2016Q2

REPORT INFORMATION
  Report Type: Report from Study
  Country: BR (occurrence: BR)
  Receive Date: 20160329
  Receipt Date: 20160525
  Transmission Date: 20160815
  Serious: Yes (Other)
  Sender: FDA-Public Use
  Company Number: PHHY2016BR041446

PATIENT
  Sex: Male
  Weight: 95 kg

DRUGS (2)
  1. SANDOSTATIN LAR DEPOT [Suspect]
     Active Substance: OCTREOTIDE ACETATE
     Indication: ACROMEGALY
     Dosage: 20 MG, QMO
     Route: 030
     Dates: start: 2011
  2. SANDOSTATIN LAR DEPOT [Suspect]
     Active Substance: OCTREOTIDE ACETATE
     Dosage: 30 MG, QMO
     Route: 030

REACTIONS (9)
  - Hormone level abnormal [Unknown]
  - Anxiety [Unknown]
  - Prostatomegaly [Unknown]
  - Fatigue [Unknown]
  - Hepatic steatosis [Recovering/Resolving]
  - Dysuria [Unknown]
  - Transient ischaemic attack [Unknown]
  - Overweight [Unknown]
  - Free prostate-specific antigen increased [Unknown]
